FAERS Safety Report 19974740 (Version 1)
Quarter: 2021Q4

REPORT INFORMATION
  Report Type: Spontaneous
  Country: US (occurrence: US)
  Receive Date: 20211020
  Receipt Date: 20211020
  Transmission Date: 20220303
  Serious: No
  Sender: FDA-Public Use
  Company Number: US-INSMED, INC.-2021-09043-US

PATIENT
  Sex: Male

DRUGS (1)
  1. ARIKAYCE [Suspect]
     Active Substance: AMIKACIN
     Indication: Bronchiectasis
     Dosage: 590 MILLIGRAM, QD
     Route: 055
     Dates: start: 20210622, end: 2021

REACTIONS (3)
  - Respiratory disorder [Unknown]
  - Bronchospasm [Unknown]
  - Off label use [Unknown]

NARRATIVE: CASE EVENT DATE: 20210101
